FAERS Safety Report 16848918 (Version 1)
Quarter: 2019Q3

REPORT INFORMATION
  Report Type: Spontaneous
  Country: BR (occurrence: BR)
  Receive Date: 20190925
  Receipt Date: 20190925
  Transmission Date: 20191005
  Serious: Yes (Other)
  Sender: FDA-Public Use
  Company Number: BR-EMD SERONO-9117824

PATIENT
  Age: 51 Year
  Sex: Female

DRUGS (1)
  1. GLIFAGE XR [Suspect]
     Active Substance: METFORMIN HYDROCHLORIDE
     Indication: DIABETES MELLITUS
     Route: 048
     Dates: start: 2005

REACTIONS (3)
  - Blood glucose increased [Not Recovered/Not Resolved]
  - Hysterectomy [Unknown]
  - Breast cancer [Unknown]

NARRATIVE: CASE EVENT DATE: 201704
